FAERS Safety Report 4800223-3 (Version None)
Quarter: 2005Q4

REPORT INFORMATION
  Report Type: 
  Country: None (occurrence: None)
  Receive Date: 20051017
  Receipt Date: 20041108
  Transmission Date: 20060501
  Serious: No
  Sender: FDA-Public Use
  Company Number: US-GLAXOSMITHKLINE-A0533093A

PATIENT
  Age: 82 Year
  Sex: Male

DRUGS (3)
  1. CEFTIN [Suspect]
     Dosage: 500MG TWICE PER DAY
     Route: 048
     Dates: start: 20041105
  2. HUMIBID LA [Concomitant]
     Dosage: 1TAB TWICE PER DAY
     Route: 048
     Dates: start: 20040203
  3. PENLAC [Concomitant]
     Route: 061
     Dates: start: 20040202

REACTIONS (2)
  - DRUG INEFFECTIVE [None]
  - PHARMACEUTICAL PRODUCT COMPLAINT [None]
